FAERS Safety Report 7414613-6 (Version None)
Quarter: 2011Q2

REPORT INFORMATION
  Report Type: 
  Country: None (occurrence: None)
  Receive Date: 20110411
  Receipt Date: 20110411
  Transmission Date: 20111010
  Serious: Yes (Life-Threatening, Hospitalization)
  Sender: FDA-Public Use
  Company Number: None

PATIENT
  Sex: Female
  Weight: 9 kg

DRUGS (1)
  1. DEPAKOTE [Suspect]
     Indication: EPILEPSY
     Dosage: 2 IN AM, 3 IM PM PO
     Route: 048
     Dates: start: 20101206, end: 20110331

REACTIONS (3)
  - PANCREATITIS ACUTE [None]
  - LETHARGY [None]
  - DEHYDRATION [None]
